FAERS Safety Report 7975794-9 (Version None)
Quarter: 2011Q4

REPORT INFORMATION
  Report Type: 
  Country: None (occurrence: None)
  Receive Date: 20111213
  Receipt Date: 20111004
  Transmission Date: 20120403
  Serious: Yes (Other)
  Sender: FDA-Public Use
  Company Number: US-AMGEN-USASP2011052514

PATIENT
  Age: 48 Year
  Sex: Female

DRUGS (50)
  1. CELLCEPT [Suspect]
     Indication: BEHCET'S SYNDROME
     Dosage: 1000 MG, 2X/DAY
     Dates: start: 20010101, end: 20010901
  2. PREDNISONE TAB [Suspect]
     Indication: BEHCET'S SYNDROME
     Dosage: 10 MG, DAILY, OCCASIONAL PULSES
  3. DAPSONE [Suspect]
     Dosage: 50 MG, DAILY
     Dates: start: 20030601, end: 20050901
  4. LEUKERAN [Suspect]
     Dosage: 2 MG, UNK
     Dates: start: 20020601, end: 20020901
  5. REMICADE [Suspect]
     Dosage: 400 MG, UNK
     Route: 042
     Dates: start: 20050501
  6. FENTANYL [Concomitant]
     Dosage: UNK
     Route: 062
  7. PLAQUENIL [Suspect]
     Indication: BEHCET'S SYNDROME
     Dosage: 300 MG, QD
     Dates: start: 19990701, end: 20020101
  8. PLAQUENIL [Suspect]
     Dosage: 200 MG, 2X/DAY
     Dates: start: 20040801
  9. CYTOXAN [Suspect]
     Dosage: 500 MG, UNK
     Route: 042
     Dates: start: 20030101
  10. CYTOXAN [Suspect]
     Dosage: 1250 MG, UNK
     Route: 042
     Dates: start: 20030301
  11. CYTOXAN [Suspect]
     Dosage: 500 MG, UNK
     Route: 042
     Dates: start: 20030501
  12. REMICADE [Suspect]
     Dosage: 300 MG, UNK
     Route: 042
     Dates: start: 20050701
  13. GALENIC /FLUTICASONE/SALMETEROL/ [Concomitant]
     Dosage: UNK
  14. ACYCLOVIR [Concomitant]
     Dosage: UNK
  15. FOLIC ACID [Concomitant]
     Dosage: UNK
  16. ENBREL [Suspect]
     Indication: ANKYLOSING SPONDYLITIS
     Dosage: 25 MG, 2X/WEEK
     Dates: start: 20040901, end: 20050201
  17. PLAQUENIL [Suspect]
     Dosage: 200 MG, DAILY
     Dates: start: 20020601
  18. COLCHICINE [Suspect]
     Indication: BEHCET'S SYNDROME
     Dosage: 6 MG, 2X/DAY
     Dates: start: 19991001, end: 20021201
  19. CYCLOSPORINE [Suspect]
     Indication: BEHCET'S SYNDROME
     Dosage: UNK
     Dates: start: 20000501, end: 20010106
  20. LEUKERAN [Suspect]
     Indication: BEHCET'S SYNDROME
     Dosage: 4 MG, DAILY
     Dates: start: 20011101
  21. LEUKERAN [Suspect]
     Dosage: 3 MG, UNK
     Dates: start: 20020401
  22. IMURAN [Suspect]
     Indication: BEHCET'S SYNDROME
     Dosage: 150 MG, DAILY
     Dates: start: 20050201, end: 20050401
  23. REMICADE [Suspect]
     Dosage: 400 MG, UNK
     Route: 042
     Dates: start: 20051101
  24. TERBUTALINE SULFATE [Concomitant]
     Dosage: UNK
  25. ALBUTEROL SULFATE AND IPRATROPIUM BROMIDE [Concomitant]
     Dosage: UNK
  26. CYTOXAN [Suspect]
     Dosage: 1000 MG, UNK
     Route: 042
     Dates: start: 20030901
  27. DAPSONE [Suspect]
     Indication: BEHCET'S SYNDROME
     Dosage: 100 MG, 2X/DAY
     Dates: start: 19990901, end: 20000501
  28. REMICADE [Suspect]
     Dosage: 400 MG, UNK
     Route: 042
     Dates: start: 20060101, end: 20060201
  29. THEOPHYLLINE [Concomitant]
     Dosage: UNK
  30. ERYTHROMYCIN [Concomitant]
     Dosage: UNK
  31. CYTOXAN [Suspect]
     Dosage: 750 MG, UNK
     Route: 042
     Dates: start: 20030801
  32. REMICADE [Suspect]
     Indication: BEHCET'S SYNDROME
     Dosage: 200 MG, UNK
     Route: 042
     Dates: start: 20050401
  33. RITUXAN [Suspect]
     Indication: BEHCET'S SYNDROME
     Dosage: 1000 MG, UNK
     Route: 042
     Dates: start: 20060601
  34. CYTOXAN [Suspect]
     Dosage: 250 MG, UNK
     Route: 042
     Dates: start: 20021201
  35. CYTOXAN [Suspect]
     Dosage: 500 MG, UNK
     Route: 042
     Dates: end: 20040501
  36. REMICADE [Suspect]
     Dosage: 400 MG, UNK
     Route: 042
     Dates: start: 20050901
  37. ESOMEPRAZOLE MAGNESIUM [Concomitant]
     Dosage: UNK
  38. SERTRALINE HYDROCHLORIDE [Concomitant]
     Dosage: UNK
  39. METHOTREXATE [Suspect]
     Indication: BEHCET'S SYNDROME
     Dosage: TITRATED FROM 7.5 MG UP TO 20 MG WEEKLY
     Dates: start: 19981001, end: 19990701
  40. CYTOXAN [Suspect]
     Dosage: 750 MG, UNK
     Route: 042
     Dates: start: 20030201
  41. CYTOXAN [Suspect]
     Dosage: 1000 MG, UNK
     Route: 042
     Dates: start: 20030301
  42. CYTOXAN [Suspect]
     Dosage: 500 MG, UNK
     Route: 042
     Dates: start: 20030701
  43. IMURAN [Suspect]
     Dosage: 150 MG, DAILY
     Dates: start: 20070101, end: 20070301
  44. RITUXAN [Suspect]
     Dosage: 1000 MG, UNK
     Route: 042
     Dates: start: 20060705
  45. ARAVA [Suspect]
     Dosage: 20 MG, DAILY
     Dates: start: 20070601
  46. FUROSEMIDE [Concomitant]
     Dosage: UNK
  47. PENTOXIFYLLINE [Concomitant]
     Dosage: UNK
  48. PREGABALIN [Concomitant]
     Dosage: UNK
  49. CYTOXAN [Suspect]
     Dosage: 1250 MG, UNK
     Route: 042
     Dates: start: 20030401
  50. COLCHICINE [Suspect]
     Dosage: 6 MG, 2X/DAY
     Dates: start: 20040801

REACTIONS (1)
  - SQUAMOUS CELL CARCINOMA OF SKIN [None]
